FAERS Safety Report 7969395 (Version 3)
Quarter: 2016Q1

REPORT INFORMATION
  Report Type: Report from Study
  Country: CA (occurrence: CA)
  Receive Date: 20110601
  Receipt Date: 20160124
  Transmission Date: 20160526
  Serious: Yes (Life-Threatening, Hospitalization, Other)
  Sender: FDA-Public Use
  Company Number: CA-ROCHE-779283

PATIENT
  Age: 68 Year
  Sex: Female
  Weight: 55 kg

DRUGS (16)
  1. ACTEMRA [Suspect]
     Active Substance: TOCILIZUMAB
     Indication: RHEUMATOID ARTHRITIS
     Route: 042
  2. ACTEMRA [Suspect]
     Active Substance: TOCILIZUMAB
     Route: 042
     Dates: start: 20101118, end: 20131211
  3. ASA [Concomitant]
     Active Substance: ASPIRIN
     Route: 048
  4. ACTONEL [Concomitant]
     Active Substance: RISEDRONATE SODIUM
  5. LIPITOR [Concomitant]
     Active Substance: ATORVASTATIN CALCIUM
  6. ACTEMRA [Suspect]
     Active Substance: TOCILIZUMAB
     Route: 042
  7. ACTEMRA [Suspect]
     Active Substance: TOCILIZUMAB
     Route: 042
     Dates: start: 20101214, end: 20101214
  8. PARIET [Concomitant]
     Active Substance: RABEPRAZOLE SODIUM
  9. ACTEMRA [Suspect]
     Active Substance: TOCILIZUMAB
     Route: 042
  10. NORVASC [Concomitant]
     Active Substance: AMLODIPINE BESYLATE
     Route: 048
  11. ARAVA [Concomitant]
     Active Substance: LEFLUNOMIDE
     Route: 065
  12. AMLODIPINE [Concomitant]
     Active Substance: AMLODIPINE BESYLATE
  13. BISOPROLOL [Concomitant]
     Active Substance: BISOPROLOL
  14. ACTEMRA [Suspect]
     Active Substance: TOCILIZUMAB
     Route: 042
  15. ACTEMRA [Suspect]
     Active Substance: TOCILIZUMAB
     Route: 042
  16. MICARDIS [Concomitant]
     Active Substance: TELMISARTAN
     Dosage: DOSE:80/12.5 DAILY.
     Route: 054

REACTIONS (8)
  - Adenocarcinoma gastric [Not Recovered/Not Resolved]
  - Weight decreased [Unknown]
  - Joint swelling [Unknown]
  - Urinary tract infection [Unknown]
  - Myocardial infarction [Recovered/Resolved]
  - Medication error [Unknown]
  - Oedema peripheral [Recovered/Resolved]
  - Arthralgia [Unknown]

NARRATIVE: CASE EVENT DATE: 20110429
